FAERS Safety Report 8544714-0 (Version None)
Quarter: 2012Q3

REPORT INFORMATION
  Report Type: 
  Country: None (occurrence: None)
  Receive Date: 20120727
  Receipt Date: 19930419
  Transmission Date: 20120928
  Serious: Yes (Death)
  Sender: FDA-Public Use
  Company Number: US-ROCHE-1086874

PATIENT
  Age: 57 Year
  Sex: Female

DRUGS (1)
  1. ACTIVASE [Suspect]
     Indication: ACUTE MYOCARDIAL INFARCTION

REACTIONS (6)
  - METABOLIC ALKALOSIS [None]
  - ELECTROCARDIOGRAM ST SEGMENT ELEVATION [None]
  - DEATH [None]
  - BLOOD PRESSURE IMMEASURABLE [None]
  - VASOCONSTRICTION [None]
  - RESPIRATORY ALKALOSIS [None]
